FAERS Safety Report 13930178 (Version 4)
Quarter: 2017Q4

REPORT INFORMATION
  Report Type: Spontaneous
  Country: FR (occurrence: FR)
  Receive Date: 20170901
  Receipt Date: 20171005
  Transmission Date: 20180320
  Serious: Yes (Hospitalization, Other)
  Sender: FDA-Public Use
  Company Number: FR-PFIZER INC-2017362509

PATIENT
  Age: 46 Year
  Sex: Male
  Weight: 80 kg

DRUGS (4)
  1. LYRICA [Suspect]
     Active Substance: PREGABALIN
     Indication: BACK PAIN
  2. LYRICA [Suspect]
     Active Substance: PREGABALIN
     Indication: ANXIETY DISORDER
     Dosage: 3 G, DAILY (20 CAPSULES OF 150 MG, DAILY)
     Route: 048
     Dates: start: 201706
  3. LYRICA [Suspect]
     Active Substance: PREGABALIN
     Indication: TOOTHACHE
  4. LYRICA [Suspect]
     Active Substance: PREGABALIN
     Indication: SCIATICA

REACTIONS (10)
  - Gait disturbance [Recovering/Resolving]
  - Overdose [Unknown]
  - Poisoning [Recovering/Resolving]
  - Product label issue [Unknown]
  - Agitation [Recovering/Resolving]
  - Therapeutic response unexpected [Unknown]
  - Pre-existing condition improved [Unknown]
  - Euphoric mood [Unknown]
  - Confusional state [Recovering/Resolving]
  - Drug dependence [Unknown]

NARRATIVE: CASE EVENT DATE: 201706
